APPROVED DRUG PRODUCT: NALTREXONE HYDROCHLORIDE
Active Ingredient: NALTREXONE HYDROCHLORIDE
Strength: 50MG
Dosage Form/Route: TABLET;ORAL
Application: A075434 | Product #001
Applicant: NOVITIUM PHARMA LLC
Approved: Mar 8, 2000 | RLD: No | RS: No | Type: DISCN